FAERS Safety Report 25970226 (Version 1)
Quarter: 2025Q4

REPORT INFORMATION
  Report Type: Spontaneous
  Country: US (occurrence: US)
  Receive Date: 20251028
  Receipt Date: 20251028
  Transmission Date: 20260118
  Serious: Yes (Hospitalization)
  Sender: AMGEN
  Company Number: US-AMGEN-USASP2025210770

PATIENT
  Age: 5 Year

DRUGS (3)
  1. RITUXIMAB [Suspect]
     Active Substance: RITUXIMAB
     Indication: New onset refractory status epilepticus
     Dosage: UNK
     Route: 065
  2. IMMUNE GLOBULIN NOS [Concomitant]
     Active Substance: IMMUNE GLOBULIN NOS
     Route: 040
  3. ANAKINRA [Concomitant]
     Active Substance: ANAKINRA

REACTIONS (3)
  - Liver function test increased [Recovered/Resolved]
  - Malabsorption [Recovered/Resolved]
  - Abdominal distension [Recovered/Resolved]
